FAERS Safety Report 4479072-4 (Version None)
Quarter: 2004Q4

REPORT INFORMATION
  Report Type: 
  Country: None (occurrence: None)
  Receive Date: 20041015
  Receipt Date: 20041001
  Transmission Date: 20050328
  Serious: Yes (Life-Threatening)
  Sender: FDA-Public Use
  Company Number: 2004-0007587

PATIENT
  Age: 52 Year
  Sex: Female

DRUGS (1)
  1. VIREAD [Suspect]
     Indication: HIV INFECTION
     Dosage: 300 M G, 1 IN 1 D, ORAL
     Route: 048
     Dates: start: 20031217, end: 20040920

REACTIONS (3)
  - CARDIAC ARREST [None]
  - DIALYSIS [None]
  - RENAL FAILURE ACUTE [None]
